FAERS Safety Report 23529384 (Version 1)
Quarter: 2024Q1

REPORT INFORMATION
  Report Type: Spontaneous
  Country: US (occurrence: US)
  Receive Date: 20240216
  Receipt Date: 20240216
  Transmission Date: 20240410
  Serious: Yes (Other)
  Sender: FDA-Public Use
  Company Number: US-TOLMAR, INC.-24US046860

PATIENT
  Age: 12 Year
  Sex: Female

DRUGS (10)
  1. ELIGARD [Suspect]
     Active Substance: LEUPROLIDE ACETATE
     Indication: Menstrual cycle management
     Dosage: UNK
  2. ELIGARD [Suspect]
     Active Substance: LEUPROLIDE ACETATE
     Indication: Menstrual cycle management
     Dosage: UNK
  3. ESTROGENS [Concomitant]
     Active Substance: ESTROGENS
     Indication: Graft versus host disease in skin
     Route: 003
  4. ESTRADIOL [Concomitant]
     Active Substance: ESTRADIOL
     Indication: Ovarian failure
     Dosage: 25 MICROGRAM, QD
     Route: 062
  5. ESTRADIOL [Concomitant]
     Active Substance: ESTRADIOL
     Indication: Graft versus host disease in skin
     Dosage: 75 MICROGRAM, QD
     Route: 062
  6. ESTRADIOL [Concomitant]
     Active Substance: ESTRADIOL
     Indication: Prophylaxis
     Dosage: 100 MICROGRAM, QD
     Route: 062
  7. ESTRADIOL [Concomitant]
     Active Substance: ESTRADIOL
     Dosage: 50 MICROGRAM, QD
     Route: 062
  8. NORETHINDRONE ACETATE [Concomitant]
     Active Substance: NORETHINDRONE ACETATE
     Indication: Menstrual cycle management
     Route: 048
  9. NORETHINDRONE ACETATE [Concomitant]
     Active Substance: NORETHINDRONE ACETATE
     Indication: Prophylaxis
     Dosage: 5 MILLIGRAM
     Route: 048
  10. ESTRADIOL [Concomitant]
     Active Substance: ESTRADIOL
     Indication: Menstrual cycle management
     Dosage: 2 MILLIGRAM, QD
     Route: 048

REACTIONS (5)
  - Graft versus host disease in eye [Unknown]
  - Graft versus host disease in skin [Unknown]
  - Graft versus host disease [Unknown]
  - Ovarian failure [Unknown]
  - Off label use [Unknown]
